FAERS Safety Report 19385814 (Version 1)
Quarter: 2021Q2

REPORT INFORMATION
  Report Type: Spontaneous
  Country: IN (occurrence: IN)
  Receive Date: 20210608
  Receipt Date: 20210608
  Transmission Date: 20210717
  Serious: Yes (Hospitalization, Other)
  Sender: FDA-Public Use
  Company Number: IN-VISTAPHARM, INC.-VER202105-001339

PATIENT
  Age: 18 Month
  Sex: Male
  Weight: 10 kg

DRUGS (1)
  1. HYDROCODONE AND ACETAMINOPHEN [Suspect]
     Active Substance: ACETAMINOPHEN\HYDROCODONE
     Indication: PRODUCT USED FOR UNKNOWN INDICATION
     Dosage: 5ML DROPS (1ML = 100MG) FOR SEVEN TIMES IN LAST 24 HOURS (TOTAL DOSE OF 350 MG/KG)
     Route: 048

REACTIONS (4)
  - Acute hepatic failure [Recovering/Resolving]
  - Accidental overdose [Unknown]
  - Toxicity to various agents [Recovered/Resolved]
  - Metabolic acidosis [Recovering/Resolving]
